FAERS Safety Report 5676910-4 (Version None)
Quarter: 2008Q1

REPORT INFORMATION
  Report Type: 
  Country: None (occurrence: None)
  Receive Date: 20080324
  Receipt Date: 20080313
  Transmission Date: 20080703
  Serious: Yes (Other)
  Sender: FDA-Public Use
  Company Number: US-ELI_LILLY_AND_COMPANY-US200803003164

PATIENT
  Age: 15 Year
  Sex: Male

DRUGS (3)
  1. ZYPREXA [Suspect]
  2. GEODON [Concomitant]
  3. PROPRANOLOL [Concomitant]
     Dosage: 40 MG, UNK

REACTIONS (2)
  - CONVULSION [None]
  - STARING [None]
